FAERS Safety Report 4779290-1 (Version None)
Quarter: 2005Q3

REPORT INFORMATION
  Report Type: 
  Country: None (occurrence: None)
  Receive Date: 20050914
  Receipt Date: 20050714
  Transmission Date: 20060218
  Serious: Yes (Other)
  Sender: FDA-Public Use
  Company Number: 411005

PATIENT
  Age: 70 Year
  Sex: Female

DRUGS (3)
  1. BONIVA [Suspect]
     Indication: OSTEOPOROSIS
     Dosage: 150 MG ORAL
     Route: 048
  2. MIACALCIN (SALCATONIN) [Concomitant]
  3. EVISTA [Concomitant]

REACTIONS (2)
  - BONE PAIN [None]
  - OEDEMA PERIPHERAL [None]
